FAERS Safety Report 8352067-6 (Version None)
Quarter: 2012Q2

REPORT INFORMATION
  Report Type: 
  Country: None (occurrence: None)
  Receive Date: 20120509
  Receipt Date: 20120427
  Transmission Date: 20120825
  Serious: Yes (Hospitalization, Other)
  Sender: FDA-Public Use
  Company Number: AUR-APL-2012-01947

PATIENT
  Age: 59 Year
  Sex: Male

DRUGS (10)
  1. GLICLAZIDE (GLICLAZIDE) [Suspect]
     Indication: PRODUCT USED FOR UNKNOWN INDICATION
     Dosage: 3 DOSAGE FORMS (1 DOSAGE FORMS, 3 IN 1 D), ORAL
     Route: 048
     Dates: end: 20120214
  2. VICTOZA [Suspect]
     Indication: PRODUCT USED FOR UNKNOWN INDICATION
     Dosage: 0.6 MG (0.6 MG, 1 IN 1 D), SUBCUTANEOUS
     Route: 058
     Dates: start: 20110801, end: 20120214
  3. IKOREL (NICORANDIL) [Concomitant]
  4. METFORMIN HCL [Concomitant]
  5. ASPIRIN [Concomitant]
  6. UMULINE (INSULIN HUMAN) [Concomitant]
  7. PLAVIX [Concomitant]
  8. RAMIPRIL [Suspect]
     Indication: PRODUCT USED FOR UNKNOWN INDICATION
     Dosage: 10 MG (10 MG, 1 IN 1 D), ORAL
     Route: 048
     Dates: end: 20120214
  9. BISOPROLOL FUMARATE [Concomitant]
  10. ATORVASTATIN CALCIUM [Suspect]
     Indication: PRODUCT USED FOR UNKNOWN INDICATION
     Dosage: 40 MG (40 MG, 1 IN 1 D), ORAL
     Route: 048
     Dates: end: 20120214

REACTIONS (3)
  - HYPERTRIGLYCERIDAEMIA [None]
  - CONDITION AGGRAVATED [None]
  - PANCREATITIS [None]
